FAERS Safety Report 5263101-4 (Version None)
Quarter: 2007Q1

REPORT INFORMATION
  Report Type: 
  Country: None (occurrence: None)
  Receive Date: 20070312
  Receipt Date: 20070228
  Transmission Date: 20070707
  Serious: Yes (Other)
  Sender: FDA-Public Use
  Company Number: CN-PFIZER INC-2007010873

PATIENT
  Age: 73 Year
  Sex: Male

DRUGS (2)
  1. SULPERAZON [Suspect]
     Indication: INFECTION
     Route: 042
     Dates: start: 20070126, end: 20070131
  2. HEPARIN [Suspect]
     Indication: HAEMODIALYSIS
     Route: 042

REACTIONS (1)
  - PLATELET COUNT DECREASED [None]
